FAERS Safety Report 10429943 (Version 1)
Quarter: 2014Q3

REPORT INFORMATION
  Report Type: Spontaneous
  Country: US (occurrence: None)
  Receive Date: 20140903
  Receipt Date: 20140903
  Transmission Date: 20150326
  Serious: No
  Sender: FDA-Public Use
  Company Number: None

PATIENT
  Age: 79 Year
  Sex: Female
  Weight: 81.65 kg

DRUGS (2)
  1. RISPERIDONE. [Suspect]
     Active Substance: RISPERIDONE
     Indication: SCHIZOPHRENIA
     Dosage: 37MG EVERY (14) DAYS INJECTION??THERAPY?ABOUT 10 YRS AGO AT /A LARGER DOSE
     Route: 042
  2. ARIPIPRAZOLE (ABILIFY MAINFENA) [Concomitant]

REACTIONS (2)
  - Abdominal pain lower [None]
  - Procedural pain [None]

NARRATIVE: CASE EVENT DATE: 201401
